FAERS Safety Report 6022064-4 (Version None)
Quarter: 2008Q4

REPORT INFORMATION
  Report Type: 
  Country: None (occurrence: None)
  Receive Date: 20081223
  Receipt Date: 20081214
  Transmission Date: 20090506
  Serious: Yes (Hospitalization)
  Sender: FDA-Public Use
  Company Number: 232964K08USA

PATIENT
  Age: 55 Year
  Sex: Female

DRUGS (4)
  1. REBIF [Suspect]
     Indication: MULTIPLE SCLEROSIS
     Dosage: 44 MCG, 3 IN 1 WEEKS, SUBCUTANEOUS
     Route: 058
     Dates: start: 20070411
  2. UNSPECIFIED THYROID MEDICATION(THYROID) [Concomitant]
  3. OTHER UNSPECIFIED MEDICATIONS(ALL OTHER THERAPEUTIC PRODUCTS) [Concomitant]
  4. ANALGESICS [Concomitant]

REACTIONS (5)
  - ASTHENIA [None]
  - CYSTITIS [None]
  - DIPLOPIA [None]
  - HYPOAESTHESIA [None]
  - HYPOAESTHESIA ORAL [None]
